FAERS Safety Report 8395069-6 (Version None)
Quarter: 2012Q1

REPORT INFORMATION
  Report Type: 
  Country: None (occurrence: None)
  Receive Date: 20120323
  Receipt Date: 20110615
  Transmission Date: 20120608
  Serious: Yes (Other)
  Sender: FDA-Public Use
  Company Number: 163-21880-11040136

PATIENT
  Age: 54 Year
  Sex: Female

DRUGS (20)
  1. ASPIRIN [Concomitant]
  2. LOVAGA (OMEGA-3 MARINE TRIGLYCERIDES) [Concomitant]
  3. DECADRON [Concomitant]
  4. POTASSIUM CHLORIDE [Concomitant]
  5. LACTOBACILLUS (LACTOBACILLUS ACIDOPHILUS) [Concomitant]
  6. SODIUM BICARB (SODIUM BICARBONATE) [Concomitant]
  7. METAMUCIL (METAMUCIL ^PROCTER AND GAMBLE^) [Concomitant]
  8. GUAIFENESIN [Concomitant]
  9. REVLIMID [Suspect]
     Indication: MONOCLONAL GAMMOPATHY
     Dosage: 10 MG, 1 IN 1 D, PO ; 10 MG, DAILY X 21, PO
     Route: 048
     Dates: start: 20110329, end: 20110419
  10. REVLIMID [Suspect]
     Indication: MULTIPLE MYELOMA
     Dosage: 10 MG, 1 IN 1 D, PO ; 10 MG, DAILY X 21, PO
     Route: 048
     Dates: start: 20110329, end: 20110419
  11. REVLIMID [Suspect]
     Indication: MONOCLONAL GAMMOPATHY
     Dosage: 10 MG, 1 IN 1 D, PO ; 10 MG, DAILY X 21, PO
     Route: 048
     Dates: start: 20110217, end: 20110308
  12. REVLIMID [Suspect]
     Indication: MULTIPLE MYELOMA
     Dosage: 10 MG, 1 IN 1 D, PO ; 10 MG, DAILY X 21, PO
     Route: 048
     Dates: start: 20110217, end: 20110308
  13. ALLOPURINOL [Concomitant]
  14. FERROUS SULFATE TAB [Concomitant]
  15. CLARITIN [Concomitant]
  16. SIMVASTATIN [Concomitant]
  17. OMEPRAZOLE [Concomitant]
  18. LOMOTIL [Concomitant]
  19. NEPHRORITE (ALLOPURINOL [Concomitant]
  20. PROCRIT [Concomitant]

REACTIONS (3)
  - CLOSTRIDIUM DIFFICILE COLITIS [None]
  - HYPOTENSION [None]
  - URINARY TRACT INFECTION [None]
